FAERS Safety Report 10063168 (Version 1)
Quarter: 2014Q2

REPORT INFORMATION
  Report Type: Spontaneous
  Country: IL (occurrence: IL)
  Receive Date: 20140407
  Receipt Date: 20140407
  Transmission Date: 20141212
  Serious: Yes (Hospitalization, Other)
  Sender: FDA-Public Use
  Company Number: IL-WATSON-2014-06357

PATIENT
  Age: 7 Year
  Sex: Female

DRUGS (4)
  1. VALPROIC ACID (UNKNOWN) [Suspect]
     Indication: EPILEPSY
     Dosage: 200 MG/1ML (CHANGED FROM 250 MG/5 ML, WITHOUT ADJUSTING THE VOLUME ADMINISTERED)
     Route: 048
  2. VALPROIC ACID (UNKNOWN) [Suspect]
     Dosage: 250 MG/ 5 ML
     Route: 048
  3. SULTHIAME [Concomitant]
     Indication: EPILEPSY
     Dosage: UNKNOWN
     Route: 065
  4. CLONAZEPAM [Concomitant]
     Indication: EPILEPSY
     Dosage: UNKNOWN
     Route: 065

REACTIONS (6)
  - Toxicity to various agents [Recovered/Resolved]
  - Feeding disorder [Recovered/Resolved]
  - Unresponsive to stimuli [Recovered/Resolved]
  - Respiratory acidosis [Recovered/Resolved]
  - Thrombocytopenia [Recovered/Resolved]
  - Overdose [Recovered/Resolved]
